FAERS Safety Report 6333209-0 (Version None)
Quarter: 2009Q3

REPORT INFORMATION
  Report Type: 
  Country: None (occurrence: None)
  Receive Date: 20090828
  Receipt Date: 20090824
  Transmission Date: 20100115
  Serious: Yes (Death, Hospitalization, Other)
  Sender: FDA-Public Use
  Company Number: US-BRISTOL-MYERS SQUIBB COMPANY-14752299

PATIENT
  Age: 87 Year
  Sex: Male
  Weight: 74 kg

DRUGS (3)
  1. PACLITAXEL [Suspect]
     Indication: NON-SMALL CELL LUNG CANCER
     Route: 042
     Dates: start: 20090610, end: 20090723
  2. GLEEVEC [Suspect]
     Indication: NON-SMALL CELL LUNG CANCER
     Dosage: FORM-TABS
     Route: 048
     Dates: start: 20090608, end: 20090723
  3. DILTIAZEM HCL [Suspect]
     Route: 065

REACTIONS (4)
  - ATRIAL FIBRILLATION [None]
  - BUNDLE BRANCH BLOCK LEFT [None]
  - LUNG INFILTRATION [None]
  - MYOCARDIAL INFARCTION [None]
